FAERS Safety Report 7177600-1 (Version None)
Quarter: 2010Q4

REPORT INFORMATION
  Report Type: 
  Country: None (occurrence: None)
  Receive Date: 20101207
  Receipt Date: 20101122
  Transmission Date: 20110411
  Serious: No
  Sender: FDA-Public Use
  Company Number: SPI201000282

PATIENT
  Age: 36 Year
  Sex: Female
  Weight: 63.5 kg

DRUGS (1)
  1. AMITIZA [Suspect]
     Indication: CONSTIPATION
     Dosage: 8 MCG, ONCE OR TWICE DAILY, ORAL
     Route: 048
     Dates: start: 20101001

REACTIONS (1)
  - DYSPNOEA [None]
